FAERS Safety Report 8865234 (Version 1)
Quarter: 2012Q4

REPORT INFORMATION
  Report Type: 
  Country: US (occurrence: US)
  Receive Date: 20121024
  Receipt Date: 20121024
  Transmission Date: 20130627
  Serious: No
  Sender: FDA-Public Use
  Company Number: US-AMGEN-USASP2012001644

PATIENT
  Age: 54 Year
  Sex: Female

DRUGS (2)
  1. ENBREL [Suspect]
     Indication: RHEUMATOID ARTHRITIS
     Dosage: 50 mg, 2 times/wk
     Dates: start: 20081025
  2. PREDNISONE [Concomitant]
     Dosage: UNK
     Dates: end: 2011

REACTIONS (4)
  - Liver function test abnormal [Not Recovered/Not Resolved]
  - Headache [Recovered/Resolved]
  - Therapeutic response decreased [Unknown]
  - Rheumatoid arthritis [Unknown]
